FAERS Safety Report 15224737 (Version 1)
Quarter: 2018Q3

REPORT INFORMATION
  Report Type: Spontaneous
  Country: US (occurrence: US)
  Receive Date: 20180705
  Receipt Date: 20180705
  Transmission Date: 20181010
  Serious: No
  Sender: FDA-Public Use
  Company Number: None

PATIENT
  Age: 50 Year
  Sex: Male
  Weight: 76.2 kg

DRUGS (3)
  1. RIBAVIRIN. [Suspect]
     Active Substance: RIBAVIRIN
     Dates: start: 2013
  2. VICTRELIS [Suspect]
     Active Substance: BOCEPREVIR
  3. INTERFERON [Suspect]
     Active Substance: INTERFERON
     Indication: HEPATITIS C
     Dates: start: 2006

REACTIONS (1)
  - Drug ineffective [None]
